FAERS Safety Report 8956171 (Version 3)
Quarter: 2013Q1

REPORT INFORMATION
  Report Type: Spontaneous
  Country: ZA (occurrence: ZA)
  Receive Date: 20121210
  Receipt Date: 20130115
  Transmission Date: 20140127
  Serious: Yes (Hospitalization, Other)
  Sender: FDA-Public Use
  Company Number: ZA-ALLERGAN-1216718US

PATIENT
  Age: 16 Year
  Sex: Male
  Weight: 40 kg

DRUGS (2)
  1. BOTOX? [Suspect]
     Indication: CEREBRAL PALSY
     Dosage: 1000 UNITS, SINGLE
     Route: 030
     Dates: start: 20121107, end: 20121107
  2. EPILIM [Concomitant]
     Dosage: 6 ML, BID

REACTIONS (7)
  - Toxicity to various agents [Recovering/Resolving]
  - Faecal incontinence [Recovering/Resolving]
  - Salivary hypersecretion [Recovering/Resolving]
  - Choking [Recovering/Resolving]
  - Urinary incontinence [Recovering/Resolving]
  - Dysphagia [Recovering/Resolving]
  - Eyelid ptosis [Recovering/Resolving]
